FAERS Safety Report 23137976 (Version 1)
Quarter: 2023Q4

REPORT INFORMATION
  Report Type: Spontaneous
  Country: SI (occurrence: SI)
  Receive Date: 20231102
  Receipt Date: 20231102
  Transmission Date: 20240110
  Serious: Yes (Hospitalization)
  Sender: FDA-Public Use
  Company Number: None

PATIENT
  Age: 75 Year
  Sex: Male

DRUGS (12)
  1. OFEV [Suspect]
     Active Substance: NINTEDANIB
     Indication: Idiopathic pulmonary fibrosis
     Route: 048
     Dates: start: 20230821, end: 202309
  2. ALDACTONE [Suspect]
     Active Substance: SPIRONOLACTONE
     Indication: Cardiac failure
     Dosage: 1 TBL
     Route: 048
  3. AMLODIPINE\INDAPAMIDE\PERINDOPRIL [Suspect]
     Active Substance: AMLODIPINE\INDAPAMIDE\PERINDOPRIL
     Indication: Cardiac failure
     Dosage: STRENGT: 4 MG/5 MG/1,25 MG
     Route: 048
  4. ASPIRIN [Concomitant]
     Active Substance: ASPIRIN
     Indication: Product used for unknown indication
  5. Moksifloksacin STADA 400 MG [Concomitant]
     Indication: Product used for unknown indication
     Dates: start: 20230607
  6. INSULIN GLARGINE [Concomitant]
     Active Substance: INSULIN GLARGINE
     Indication: Product used for unknown indication
     Dosage: 100 ENOT/M
  7. Forxiga 10 MG [Concomitant]
     Indication: Product used for unknown indication
  8. ARTELAC UNO [Concomitant]
     Indication: Product used for unknown indication
     Dosage: 3.2 MG/ML
  9. NOVORAPID [Concomitant]
     Active Substance: INSULIN ASPART
     Indication: Product used for unknown indication
     Dosage: 100 ENOT/M
  10. Monosan 20 MG [Concomitant]
     Indication: Product used for unknown indication
  11. Sorvasta 40 MG [Concomitant]
     Indication: Product used for unknown indication
  12. CONCOR COR 2,5 MG [Concomitant]
     Indication: Product used for unknown indication

REACTIONS (4)
  - Hyperkalaemia [Unknown]
  - Weight decreased [Unknown]
  - Nausea [Unknown]
  - Diarrhoea [Unknown]

NARRATIVE: CASE EVENT DATE: 20230901
